FAERS Safety Report 8363686-5 (Version None)
Quarter: 2012Q1

REPORT INFORMATION
  Report Type: 
  Country: None (occurrence: None)
  Receive Date: 20120323
  Receipt Date: 20110712
  Transmission Date: 20120608
  Serious: Yes (Other)
  Sender: FDA-Public Use
  Company Number: 163-21880-11041566

PATIENT
  Age: 70 Year
  Sex: Male
  Weight: 84.5 kg

DRUGS (3)
  1. REVLIMID [Suspect]
  2. REVLIMID [Suspect]
     Indication: MULTIPLE MYELOMA
     Dosage: 25 MG, DAILY FOR 21 DAYS; 7 DAYS OFF, PO 10 MG, DAILY FOR 21 DAYS; 7 DAYS OFF, PO
     Route: 048
     Dates: start: 20101209
  3. REVLIMID [Suspect]
     Indication: MULTIPLE MYELOMA
     Dosage: 25 MG, DAILY FOR 21 DAYS; 7 DAYS OFF, PO 10 MG, DAILY FOR 21 DAYS; 7 DAYS OFF, PO
     Route: 048
     Dates: start: 20110401

REACTIONS (1)
  - RENAL FAILURE [None]
